FAERS Safety Report 7607353-1 (Version None)
Quarter: 2011Q3

REPORT INFORMATION
  Report Type: 
  Country: None (occurrence: None)
  Receive Date: 20110713
  Receipt Date: 20110707
  Transmission Date: 20111222
  Serious: Yes (Hospitalization)
  Sender: FDA-Public Use
  Company Number: US-GILEAD-2011-0039773

PATIENT
  Sex: Female

DRUGS (3)
  1. LETAIRIS [Suspect]
     Indication: PULMONARY ARTERIAL HYPERTENSION
     Route: 048
     Dates: start: 20100803
  2. REVATIO [Concomitant]
  3. LETAIRIS [Suspect]
     Indication: SLEEP APNOEA SYNDROME

REACTIONS (2)
  - CARDIAC FAILURE CONGESTIVE [None]
  - DYSPNOEA [None]
